FAERS Safety Report 6354940-7 (Version None)
Quarter: 2009Q3

REPORT INFORMATION
  Report Type: 
  Country: None (occurrence: None)
  Receive Date: 20090914
  Receipt Date: 20080109
  Transmission Date: 20100115
  Serious: Yes (Other)
  Sender: FDA-Public Use
  Company Number: A0689795A

PATIENT
  Age: 77 Year
  Sex: Female

DRUGS (12)
  1. ADVAIR HFA [Suspect]
     Indication: CHRONIC OBSTRUCTIVE PULMONARY DISEASE
     Dosage: 1PUFF PER DAY
     Route: 055
     Dates: start: 20040101
  2. PAROXETINE HCL [Suspect]
     Indication: PANIC DISORDER
     Dosage: 10MG PER DAY
     Route: 048
     Dates: start: 20070801
  3. TRIAMTERENE AND HYDROCHLOROTHIAZIDE [Concomitant]
  4. XANAX [Concomitant]
  5. TRAZODONE [Concomitant]
  6. SPIRIVA [Concomitant]
  7. PRAVASTATIN [Concomitant]
  8. PAXIL [Concomitant]
  9. DILTIAZEM [Concomitant]
  10. ASPIRIN [Concomitant]
  11. NEXIUM [Concomitant]
  12. LOVASTATIN [Concomitant]

REACTIONS (4)
  - ALOPECIA [None]
  - CATARACT [None]
  - PRODUCT QUALITY ISSUE [None]
  - PRURITUS [None]
